FAERS Safety Report 17314285 (Version 1)
Quarter: 2020Q1

REPORT INFORMATION
  Report Type: Spontaneous
  Country: US (occurrence: US)
  Receive Date: 20200107
  Receipt Date: 20200107
  Transmission Date: 20200409
  Serious: Yes (Other)
  Sender: FDA-Public Use
  Company Number: None

PATIENT
  Age: 76 Year
  Sex: Female
  Weight: 83.91 kg

DRUGS (4)
  1. ANORO ELLIPTA (INHALATION POWDER) [Concomitant]
  2. GABAPENTIN 300MG GENERIC FOR NEURONTIN [Suspect]
     Active Substance: GABAPENTIN
     Indication: BACK PAIN
     Dosage: ?          QUANTITY:3 PILLS;OTHER FREQUENCY:1-3 TAB, 1WK 2WK3W;?
     Route: 048
     Dates: start: 20191030, end: 20191205
  3. TIZANIDINE HCL [Concomitant]
     Active Substance: TIZANIDINE HYDROCHLORIDE
  4. VITAMIN C COMPLEX WITH RUTIN [Concomitant]

REACTIONS (4)
  - Dyspnoea [None]
  - Oropharyngeal pain [None]
  - Peripheral swelling [None]
  - Joint swelling [None]

NARRATIVE: CASE EVENT DATE: 20191203
